FAERS Safety Report 10049477 (Version 2)
Quarter: 2014Q2

REPORT INFORMATION
  Report Type: Spontaneous
  Country: FR (occurrence: FR)
  Receive Date: 20140401
  Receipt Date: 20140526
  Transmission Date: 20141212
  Serious: Yes (Hospitalization)
  Sender: FDA-Public Use
  Company Number: FR-ROCHE-1370801

PATIENT
  Age: 55 Year
  Sex: Female

DRUGS (2)
  1. ROCEPHINE [Suspect]
     Indication: PROPHYLAXIS
     Route: 042
     Dates: start: 20140211
  2. FLAGYL [Suspect]
     Indication: PROPHYLAXIS
     Route: 048
     Dates: start: 20140211

REACTIONS (1)
  - Coagulation factor deficiency [Not Recovered/Not Resolved]
